FAERS Safety Report 4414187-8 (Version None)
Quarter: 2004Q3

REPORT INFORMATION
  Report Type: 
  Country: None (occurrence: None)
  Receive Date: 20040728
  Receipt Date: 20040719
  Transmission Date: 20050211
  Serious: Yes (Hospitalization)
  Sender: FDA-Public Use
  Company Number: TPG2004A00150

PATIENT
  Age: 78 Year
  Sex: Female

DRUGS (6)
  1. ACTOS [Suspect]
     Indication: DIABETES MELLITUS NON-INSULIN-DEPENDENT
     Dosage: 45 MG (45 MG 1 IN 1 D)
     Route: 048
     Dates: start: 20040120, end: 20040309
  2. DIABESIN (METFORMIN HYDROCHLORIDE) [Concomitant]
  3. BISOPROLOL FUMARATE [Concomitant]
  4. CANDESARTAN CILEXETIL         (CANDESARTAN CILEXETIL) [Concomitant]
  5. SIMVASTATIN [Concomitant]
  6. HYDROCHLOROTHIAZIDE [Concomitant]

REACTIONS (17)
  - AORTIC ATHEROSCLEROSIS [None]
  - AORTIC VALVE SCLEROSIS [None]
  - CONDITION AGGRAVATED [None]
  - DIABETES MELLITUS [None]
  - DIASTOLIC DYSFUNCTION [None]
  - DIZZINESS [None]
  - DYSPNOEA [None]
  - HEADACHE [None]
  - HYPERTENSIVE CRISIS [None]
  - MITRAL VALVE INCOMPETENCE [None]
  - MITRAL VALVE SCLEROSIS [None]
  - NAUSEA [None]
  - PULMONARY HYPERTENSION [None]
  - REFUSAL OF TREATMENT BY PATIENT [None]
  - SUPRAVENTRICULAR EXTRASYSTOLES [None]
  - VENTRICULAR EXTRASYSTOLES [None]
  - VOMITING [None]
